FAERS Safety Report 20248088 (Version 2)
Quarter: 2022Q1

REPORT INFORMATION
  Report Type: Spontaneous
  Country: AR (occurrence: None)
  Receive Date: 20211229
  Receipt Date: 20220112
  Transmission Date: 20220423
  Serious: Yes (Other)
  Sender: FDA-Public Use
  Company Number: 2021A899078

PATIENT
  Age: 18 Year
  Sex: Female

DRUGS (3)
  1. OMEPRAZOLE [Suspect]
     Active Substance: OMEPRAZOLE
     Dosage: UNKNOWN DOSE AS REQUIRED
     Route: 048
  2. ETANERCEPT [Suspect]
     Active Substance: ETANERCEPT
     Indication: Rheumatoid arthritis
     Dosage: ETANERCEPT SOLUTION FOR INJECTION IN PRE-FILLED PEN
     Route: 065
     Dates: start: 20190730
  3. IBUPROFEN/CAFFEINE [Concomitant]
     Dosage: UNKNOWN
     Route: 065

REACTIONS (10)
  - Musculoskeletal disorder [Unknown]
  - Liver disorder [Unknown]
  - Feeling cold [Unknown]
  - Bone pain [Unknown]
  - Pain in extremity [Unknown]
  - Sensitivity to weather change [Unknown]
  - Pain [Unknown]
  - Fatigue [Unknown]
  - Pyrexia [Unknown]
  - Drug intolerance [Unknown]

NARRATIVE: CASE EVENT DATE: 20210101
